FAERS Safety Report 11374627 (Version 1)
Quarter: 2015Q3

REPORT INFORMATION
  Report Type: Spontaneous
  Country: US (occurrence: US)
  Receive Date: 20150813
  Receipt Date: 20150813
  Transmission Date: 20151125
  Serious: No
  Sender: FDA-Public Use
  Company Number: US-AMGEN-USASP2015081493

PATIENT
  Age: 60 Year
  Sex: Female

DRUGS (1)
  1. ENBREL [Suspect]
     Active Substance: ETANERCEPT
     Indication: RHEUMATOID ARTHRITIS
     Dosage: 50 MG, QWK
     Route: 065
     Dates: start: 20150415, end: 20150706

REACTIONS (7)
  - Joint swelling [Recovering/Resolving]
  - Incontinence [Recovering/Resolving]
  - Petechiae [Recovering/Resolving]
  - Vision blurred [Recovering/Resolving]
  - Alopecia [Unknown]
  - Peripheral swelling [Recovering/Resolving]
  - Dry eye [Recovering/Resolving]

NARRATIVE: CASE EVENT DATE: 20150608
